FAERS Safety Report 4582380-X (Version None)
Quarter: 2005Q1

REPORT INFORMATION
  Report Type: 
  Country: None (occurrence: None)
  Receive Date: 20050119
  Receipt Date: 20031223
  Transmission Date: 20050727
  Serious: Yes (Death)
  Sender: FDA-Public Use
  Company Number: US-JNJFOC-20031204683

PATIENT
  Age: 80 Year
  Sex: Female

DRUGS (2)
  1. DOXIL [Suspect]
     Indication: LYMPHOMA
     Dosage: 35 MG/M2, 1 IN 21 DAY, INTRAVENOUS
     Route: 042
     Dates: start: 20030909, end: 20031120
  2. RITUXAN [Suspect]
     Indication: LYMPHOMA

REACTIONS (3)
  - DEHYDRATION [None]
  - DIARRHOEA [None]
  - LYMPHOMA [None]
